FAERS Safety Report 14066603 (Version 1)
Quarter: 2017Q4

REPORT INFORMATION
  Report Type: Spontaneous
  Country: US (occurrence: US)
  Receive Date: 20171009
  Receipt Date: 20171009
  Transmission Date: 20180321
  Serious: No
  Sender: FDA-Public Use
  Company Number: US-BAYER-2017-177155

PATIENT
  Age: 81 Year
  Sex: Male
  Weight: 73 kg

DRUGS (1)
  1. ALEVE [Suspect]
     Active Substance: NAPROXEN SODIUM
     Indication: ARTHRALGIA
     Dosage: 2 DF, BID
     Route: 048

REACTIONS (3)
  - Poor quality drug administered [None]
  - Product shape issue [None]
  - Off label use [Unknown]
